FAERS Safety Report 19747204 (Version 8)
Quarter: 2022Q1

REPORT INFORMATION
  Report Type: Report from Study
  Country: CA (occurrence: CA)
  Receive Date: 20210826
  Receipt Date: 20220127
  Transmission Date: 20220423
  Serious: Yes (Other)
  Sender: FDA-Public Use
  Company Number: CA-JNJFOC-20210841856

PATIENT
  Age: 12 Year
  Sex: Male
  Weight: 71 kg

DRUGS (5)
  1. REMICADE [Suspect]
     Active Substance: INFLIXIMAB
     Indication: Colitis ulcerative
     Dosage: THE PATIENT ADMINISTERED 17TH INFUSION OF 600 MG ON 10-DEC-2021 AND PARTIAL MAYO COMPLETED
     Route: 042
     Dates: start: 20200929
  2. REMICADE [Suspect]
     Active Substance: INFLIXIMAB
     Route: 042
     Dates: start: 20220121
  3. REMICADE [Suspect]
     Active Substance: INFLIXIMAB
     Route: 042
  4. CORTISONE [Suspect]
     Active Substance: CORTISONE
     Indication: Haematochezia
     Dosage: 8 TABLETS FOR 5 DAYS
     Route: 048
     Dates: start: 20211007
  5. CORTISONE [Suspect]
     Active Substance: CORTISONE
     Indication: Pain

REACTIONS (7)
  - Haematochezia [Not Recovered/Not Resolved]
  - Malaise [Recovered/Resolved]
  - Decreased appetite [Recovered/Resolved]
  - Diarrhoea [Recovered/Resolved]
  - Pain [Recovered/Resolved]
  - Off label use [Unknown]
  - Extra dose administered [Unknown]

NARRATIVE: CASE EVENT DATE: 20210901
